FAERS Safety Report 4314881-3 (Version None)
Quarter: 2004Q1

REPORT INFORMATION
  Report Type: 
  Country: None (occurrence: None)
  Receive Date: 20040310
  Receipt Date: 20040310
  Transmission Date: 20041129
  Serious: Yes (Hospitalization)
  Sender: FDA-Public Use
  Company Number: None

PATIENT
  Age: 56 Year
  Sex: Male
  Weight: 117 kg

DRUGS (17)
  1. FLUOROURACIL [Suspect]
     Indication: GASTRIC CANCER
     Dosage: 4800 MG INFUSION (ONLY PARTLY ADMINISTERED) IV X 1
     Route: 042
     Dates: start: 20031216
  2. FLUOROURACIL [Suspect]
     Indication: OESOPHAGEAL ADENOCARCINOMA
     Dosage: 4800 MG INFUSION (ONLY PARTLY ADMINISTERED) IV X 1
     Route: 042
     Dates: start: 20031216
  3. OXALIPLATIN [Concomitant]
  4. LEUCOVORIN [Concomitant]
  5. ALBUTEROL [Concomitant]
  6. ASPIRIN [Concomitant]
  7. CETIRIZINE HCL [Concomitant]
  8. EPOETIN ALFA [Concomitant]
  9. CROMOLYN SODIUM [Concomitant]
  10. ACETAMINOPHEN AND HYDROCODONE BITARTRATE [Concomitant]
  11. DOCUSATE [Concomitant]
  12. DOXAZOSIN MESYLATE [Concomitant]
  13. GEMFIBROZIL [Concomitant]
  14. IBUPROFEN [Concomitant]
  15. LANSOPRAZOLE [Concomitant]
  16. SENNA [Concomitant]
  17. PROCHLORPERAZINE [Concomitant]

REACTIONS (2)
  - ARTERIOSPASM CORONARY [None]
  - MYOCARDIAL INFARCTION [None]
